FAERS Safety Report 9631155 (Version 1)
Quarter: 2013Q4

REPORT INFORMATION
  Report Type: Report from Study
  Country: US (occurrence: US)
  Receive Date: 20131018
  Receipt Date: 20131018
  Transmission Date: 20140711
  Serious: No
  Sender: FDA-Public Use
  Company Number: US-009507513-1310USA008158

PATIENT
  Sex: Female

DRUGS (4)
  1. FOSAMAX [Suspect]
     Dosage: UNK
     Dates: end: 2013
  2. AMPYRA [Suspect]
     Dosage: 10 MG, Q12H
     Route: 048
     Dates: start: 20121211
  3. RITALIN [Concomitant]
     Dosage: UNK
  4. MELATONIN [Concomitant]
     Dosage: UNK

REACTIONS (4)
  - Hypervigilance [Unknown]
  - Pain in jaw [Unknown]
  - Insomnia [Unknown]
  - Pain in extremity [Unknown]
